FAERS Safety Report 11323821 (Version 1)
Quarter: 2015Q3

REPORT INFORMATION
  Report Type: Spontaneous
  Country: NL (occurrence: NL)
  Receive Date: 20150730
  Receipt Date: 20150730
  Transmission Date: 20151125
  Serious: Yes (Hospitalization)
  Sender: FDA-Public Use
  Company Number: NL-SA-2015SA109611

PATIENT
  Age: 84 Year
  Sex: Female
  Weight: 58 kg

DRUGS (13)
  1. ATORVASTATIN [Concomitant]
     Active Substance: ATORVASTATIN
     Dosage: STRENGTH: 20MG AND DOSE: 1DD1
     Route: 048
  2. MACROGOL [Interacting]
     Active Substance: POLYETHYLENE GLYCOLS
     Indication: COLONOSCOPY
     Dosage: DOSE: MOVIPREP IN USUAL PRESCRIPTION
     Route: 048
     Dates: start: 20150716
  3. HALOPERIDOL. [Concomitant]
     Active Substance: HALOPERIDOL
     Dosage: STRENGHT: 1MG AND DOSE: 2DD1
     Route: 048
  4. LOSARTAN. [Concomitant]
     Active Substance: LOSARTAN
     Dosage: STRENGTH: 50MG AND DOSE: 1DD1
     Route: 048
  5. METOPROLOL SUCCINATE. [Concomitant]
     Active Substance: METOPROLOL SUCCINATE
     Dosage: STRENGTH: 50MG AND DOSE 1DD1
     Route: 048
  6. FUROSEMIDE. [Suspect]
     Active Substance: FUROSEMIDE
     Indication: CARDIAC FAILURE
     Route: 048
     Dates: start: 2013, end: 20150717
  7. PANTOPRAZOLE SODIUM. [Concomitant]
     Active Substance: PANTOPRAZOLE SODIUM
     Dosage: STRENGTH: 40MG AND DOSE: 1DD1 STUK (S)
     Dates: start: 2012, end: 20150717
  8. PARACETAMOL [Concomitant]
     Active Substance: ACETAMINOPHEN
     Dosage: STRENGTH: 500MG AND DOSE: 3DD2 IF REQUIRED
     Route: 048
  9. IPRATROPIUM/SALBUTAMOL [Concomitant]
     Dosage: STRENGTH: 1/0,2MG/ML AND DOSE: 4DD1 IF REQUIRED
     Route: 055
  10. HYDROXYCARBAMIDE [Concomitant]
     Active Substance: HYDROXYUREA
     Dosage: STRENGTH: 500MG AND DOSE: 1DD1
     Route: 048
  11. ACENOCOUMAROL [Concomitant]
     Active Substance: ACENOCOUMAROL
     Dosage: STRENGTH: 1MG AND DOSE: 1DD1
     Route: 048
  12. CALCICHEW [Concomitant]
     Active Substance: CALCIUM CARBONATE
     Dosage: STRENGTH: 500MG AND DOSE: 1 DD1
     Route: 048
  13. POTASSIUM CHLORIDE. [Concomitant]
     Active Substance: POTASSIUM CHLORIDE
     Dosage: STRENGTH: 600MG (8MMOL) AND DOSE: 3DD1
     Route: 048

REACTIONS (3)
  - Seizure [Recovered/Resolved]
  - Drug interaction [Unknown]
  - Hypomagnesaemia [Recovered/Resolved]

NARRATIVE: CASE EVENT DATE: 20150717
